FAERS Safety Report 9525283 (Version 1)
Quarter: 2013Q3

REPORT INFORMATION
  Report Type: Spontaneous
  Country: US (occurrence: None)
  Receive Date: 20130913
  Receipt Date: 20130913
  Transmission Date: 20140515
  Serious: Yes (Life-Threatening, Hospitalization)
  Sender: FDA-Public Use
  Company Number: None

PATIENT
  Age: 60 Year
  Sex: Male
  Weight: 62 kg

DRUGS (1)
  1. BENAZEPRIL [Suspect]
     Indication: HYPERTENSION
     Dosage: MG EVERY DAY PO
     Route: 048
     Dates: start: 20130624, end: 20130624

REACTIONS (1)
  - Anaphylactic reaction [None]
